FAERS Safety Report 11215653 (Version 1)
Quarter: 2015Q2

REPORT INFORMATION
  Report Type: Spontaneous
  Country: SE (occurrence: SE)
  Receive Date: 20150624
  Receipt Date: 20150624
  Transmission Date: 20150821
  Serious: Yes (Hospitalization, Disabling)
  Sender: FDA-Public Use
  Company Number: SE-PFIZER INC-2015205387

PATIENT
  Age: 81 Year
  Sex: Female

DRUGS (7)
  1. KALCIPOS-D FORTE [Concomitant]
  2. WARAN [Concomitant]
     Active Substance: WARFARIN SODIUM
  3. SALAZOPYRIN EN [Suspect]
     Active Substance: SULFASALAZINE
     Indication: RHEUMATOID ARTHRITIS
     Dates: start: 20141106, end: 20141216
  4. BISOPROLOL [Concomitant]
     Active Substance: BISOPROLOL
  5. PREDNISOLONE. [Concomitant]
     Active Substance: PREDNISOLONE
  6. PULMICORT TURBUHALER [Concomitant]
     Active Substance: BUDESONIDE
  7. SPIRIVA [Concomitant]
     Active Substance: TIOTROPIUM BROMIDE MONOHYDRATE

REACTIONS (2)
  - Neutropenia [Not Recovered/Not Resolved]
  - Febrile neutropenia [Unknown]

NARRATIVE: CASE EVENT DATE: 20141216
